FAERS Safety Report 12710438 (Version 1)
Quarter: 2016Q3

REPORT INFORMATION
  Report Type: Spontaneous
  Country: US (occurrence: US)
  Receive Date: 20160902
  Receipt Date: 20160902
  Transmission Date: 20161109
  Serious: No
  Sender: FDA-Public Use
  Company Number: US-DUSA PHARMACEUTICALS, INC.-1056994

PATIENT
  Age: 65 Year
  Sex: Female
  Weight: 63.64 kg

DRUGS (1)
  1. LEVULAN KERASTICK [Suspect]
     Active Substance: AMINOLEVULINIC ACID HYDROCHLORIDE
     Indication: ACTINIC KERATOSIS
     Route: 061
     Dates: start: 20160311, end: 20160311

REACTIONS (5)
  - Application site erythema [Recovered/Resolved]
  - Drug ineffective [Recovered/Resolved]
  - Application site swelling [Recovered/Resolved]
  - Application site dysaesthesia [Recovered/Resolved]
  - Application site pain [Recovered/Resolved]

NARRATIVE: CASE EVENT DATE: 20160311
